FAERS Safety Report 24641533 (Version 1)
Quarter: 2024Q4

REPORT INFORMATION
  Report Type: Report from Study
  Country: CA (occurrence: CA)
  Receive Date: 20241120
  Receipt Date: 20241120
  Transmission Date: 20250114
  Serious: Yes (Hospitalization)
  Sender: SAMSUNG BIOEPIS
  Company Number: CA-SAMSUNG BIOEPIS-SB-2024-16739

PATIENT
  Age: 66 Year
  Sex: Male

DRUGS (2)
  1. RENFLEXIS [Suspect]
     Active Substance: INFLIXIMAB-ABDA
     Indication: Crohn^s disease
     Dates: start: 20191220
  2. RENFLEXIS [Suspect]
     Active Substance: INFLIXIMAB-ABDA
     Dates: start: 20191220

REACTIONS (12)
  - Large intestinal obstruction [Recovered/Resolved]
  - Abdominal pain [Recovered/Resolved]
  - Eye swelling [Recovered/Resolved]
  - Tenderness [Not Recovered/Not Resolved]
  - Ear swelling [Recovered/Resolved]
  - Swelling [Recovered/Resolved]
  - Harvey-Bradshaw index [Recovering/Resolving]
  - Lethargy [Unknown]
  - Abnormal faeces [Unknown]
  - Arthralgia [Recovering/Resolving]
  - Eye pain [Recovering/Resolving]
  - Off label use [Unknown]

NARRATIVE: CASE EVENT DATE: 20240501
